FAERS Safety Report 4391273-2 (Version None)
Quarter: 2004Q2

REPORT INFORMATION
  Report Type: 
  Country: None (occurrence: None)
  Receive Date: 20040621
  Receipt Date: 20040408
  Transmission Date: 20050107
  Serious: Yes (Death, Other)
  Sender: FDA-Public Use
  Company Number: USA-2002-0001087

PATIENT
  Age: 34 Year
  Sex: Female
  Weight: 53.5 kg

DRUGS (14)
  1. OXYCONTIN [Suspect]
     Indication: PAIN
     Dosage: 20 MG, Q12H
     Dates: start: 19980916
  2. MS CONTIN [Suspect]
     Indication: PAIN
     Dosage: 30 MG, Q12H
     Dates: start: 19980713
  3. ROCEPHIN [Suspect]
     Dosage: 1 GRAM, INTR
     Dates: start: 19990312
  4. CELEBREX [Suspect]
     Dosage: 200 MG, Q12H
     Dates: start: 19990202
  5. XANAX [Suspect]
     Dosage: 1 MG, TID
     Dates: start: 19981214
  6. LORTAB [Suspect]
     Indication: PAIN
     Dosage: 7.5 MG, Q6H PRN
     Dates: start: 19981102
  7. SOMA [Suspect]
     Indication: MUSCULOSKELETAL DISORDER
     Dosage: 350 MG, TID
     Dates: start: 19980713
  8. AMOXICILLIN [Suspect]
     Dosage: 500 MG, Q6H
     Dates: start: 19990308
  9. ZYBAN [Concomitant]
  10. FLAGYL [Concomitant]
  11. AMBIEN [Concomitant]
  12. RELAFEN [Concomitant]
  13. PROCTOFOAM [Concomitant]
  14. RESTORIL [Concomitant]

REACTIONS (5)
  - ACCIDENTAL OVERDOSE [None]
  - DRUG DEPENDENCE [None]
  - DYSPNOEA [None]
  - PAIN [None]
  - UPPER RESPIRATORY TRACT INFECTION [None]
